FAERS Safety Report 8541746-3 (Version None)
Quarter: 2012Q3

REPORT INFORMATION
  Report Type: 
  Country: None (occurrence: None)
  Receive Date: 20120726
  Receipt Date: 20110824
  Transmission Date: 20120928
  Serious: No
  Sender: FDA-Public Use
  Company Number: US-ASTRAZENECA-2011SE50865

PATIENT
  Age: 55 Year
  Sex: Female
  Weight: 74.8 kg

DRUGS (2)
  1. INVEGA SUSTENNA [Concomitant]
     Indication: PSYCHOTIC DISORDER
  2. SEROQUEL [Suspect]
     Indication: SLEEP DISORDER
     Route: 048
     Dates: start: 20080101

REACTIONS (3)
  - INSOMNIA [None]
  - DRUG DOSE OMISSION [None]
  - OFF LABEL USE [None]
